FAERS Safety Report 5090673-5 (Version None)
Quarter: 2006Q3

REPORT INFORMATION
  Report Type: 
  Country: None (occurrence: None)
  Receive Date: 20060828
  Receipt Date: 20060817
  Transmission Date: 20061208
  Serious: Yes (Hospitalization)
  Sender: FDA-Public Use
  Company Number: US-AVENTIS-200618632GDDC

PATIENT
  Age: 63 Year
  Sex: Male

DRUGS (6)
  1. TAXOTERE [Suspect]
     Indication: NON-SMALL CELL LUNG CANCER METASTATIC
     Route: 042
     Dates: start: 20060801, end: 20060801
  2. ERBITUX [Suspect]
     Indication: NON-SMALL CELL LUNG CANCER METASTATIC
     Route: 042
     Dates: start: 20060801, end: 20060801
  3. CARBOPLATIN [Suspect]
     Indication: NON-SMALL CELL LUNG CANCER METASTATIC
     Route: 042
     Dates: start: 20060801, end: 20060801
  4. MAGNESIUM [Concomitant]
     Dosage: DOSE: UNK
     Dates: start: 20060801, end: 20060804
  5. MS CONTIN [Concomitant]
     Dosage: DOSE: UNK
     Dates: start: 20060216
  6. HYDROCHLOROTHIAZIDE [Concomitant]
     Dosage: DOSE: UNK
     Dates: start: 20000101

REACTIONS (7)
  - ASTHENIA [None]
  - BALANCE DISORDER [None]
  - BLOOD CREATININE INCREASED [None]
  - DECREASED APPETITE [None]
  - FATIGUE [None]
  - RENAL IMPAIRMENT [None]
  - URINE OUTPUT DECREASED [None]
